FAERS Safety Report 8607905-6 (Version None)
Quarter: 2012Q3

REPORT INFORMATION
  Report Type: 
  Country: None (occurrence: None)
  Receive Date: 20120821
  Receipt Date: 20120814
  Transmission Date: 20120928
  Serious: Yes (Other)
  Sender: FDA-Public Use
  Company Number: US-BAYER-2012-083853

PATIENT
  Sex: Female

DRUGS (2)
  1. DROSPIRENONE AND ETHINYL ESTRADIOL [Suspect]
     Dosage: UNK
     Dates: start: 20090601, end: 20090803
  2. YASMIN [Suspect]
     Dosage: UNK
     Dates: start: 20090601, end: 20090803

REACTIONS (6)
  - LACUNAR INFARCTION [None]
  - EMOTIONAL DISTRESS [None]
  - INJURY [None]
  - PAIN [None]
  - GENERAL PHYSICAL HEALTH DETERIORATION [None]
  - ANXIETY [None]
